FAERS Safety Report 8537699-4 (Version None)
Quarter: 2012Q3

REPORT INFORMATION
  Report Type: 
  Country: None (occurrence: None)
  Receive Date: 20120725
  Receipt Date: 20120717
  Transmission Date: 20120928
  Serious: No
  Sender: FDA-Public Use
  Company Number: US-B.I. PHARMACEUTICALS,INC./RIDGEFIELD-2012-BP-15905BP

PATIENT
  Sex: Female

DRUGS (6)
  1. SYNTHROID [Concomitant]
  2. CATAPRES-TTS-1 [Suspect]
     Indication: HYPERTENSION
     Dosage: 0.1 MG
     Route: 061
     Dates: start: 20120325
  3. INDERAL LA [Concomitant]
     Indication: HYPERTENSION
     Dosage: 120 MG
     Route: 048
     Dates: start: 20120325
  4. SYNTHROID [Concomitant]
  5. KLOR-CON [Concomitant]
     Indication: BLOOD POTASSIUM ABNORMAL
     Dosage: 25 MEQ
     Route: 048
  6. HYGROTON [Concomitant]
     Indication: DIURETIC THERAPY
     Dosage: 12.5 MG
     Route: 048

REACTIONS (2)
  - APPLICATION SITE VESICLES [None]
  - RASH PUSTULAR [None]
